FAERS Safety Report 7441100-1 (Version None)
Quarter: 2011Q2

REPORT INFORMATION
  Report Type: 
  Country: None (occurrence: None)
  Receive Date: 20110427
  Receipt Date: 20110405
  Transmission Date: 20111010
  Serious: Yes (Hospitalization, Other)
  Sender: FDA-Public Use
  Company Number: US-BAYER-2011-007864

PATIENT
  Age: 39 Year
  Sex: Female
  Weight: 150 kg

DRUGS (5)
  1. PHENERGAN EXPECTORANT W/ CODEINE [Concomitant]
     Indication: COUGH
     Dosage: UNK UNK, PRN
     Dates: start: 20110120
  2. AVELOX [Suspect]
     Indication: BRONCHITIS
     Dosage: 400 MG, UNK
     Dates: start: 20110120
  3. ZITHROMAX [Concomitant]
     Dosage: UNK
     Dates: start: 20110125
  4. VENTOLIN HFA [Concomitant]
     Dosage: 2 PUFFS, PRN SOB
     Dates: start: 20110120
  5. PREDNISONE [Concomitant]
     Dosage: 40 MG, QD
     Route: 048

REACTIONS (3)
  - DYSPNOEA [None]
  - ANAPHYLACTIC SHOCK [None]
  - CHOKING SENSATION [None]
